FAERS Safety Report 5601035-3 (Version None)
Quarter: 2008Q1

REPORT INFORMATION
  Report Type: 
  Country: None (occurrence: None)
  Receive Date: 20080107
  Receipt Date: 20070910
  Transmission Date: 20080703
  Serious: Yes (Other)
  Sender: FDA-Public Use
  Company Number: 2007BH006653

PATIENT
  Age: 40 Year
  Sex: Female
  Weight: 66 kg

DRUGS (12)
  1. ENLON-PLUS [Suspect]
     Indication: ANAESTHESIA REVERSAL
     Dosage: 3 CC;ONCE;IV
     Route: 042
     Dates: start: 20070726, end: 20070726
  2. FUROSEMIDE [Concomitant]
  3. MAG-OX [Concomitant]
  4. LIPITOR [Concomitant]
  5. LISINOPRIL [Concomitant]
  6. ASPIRIN [Concomitant]
  7. ATENOLOL [Concomitant]
  8. LEVOTHYROXINE SODIUM [Concomitant]
  9. IMDUR [Concomitant]
  10. NOVOLOG [Concomitant]
  11. LANTUS [Concomitant]
  12. 5% DEXTROSE, 0.45% SODIUM CHLORIDE AND POTASSIUM CHLORIDE INJECTIONS [Concomitant]

REACTIONS (1)
  - BRADYCARDIA [None]
